FAERS Safety Report 8606992-9 (Version None)
Quarter: 2012Q3

REPORT INFORMATION
  Report Type: 
  Country: None (occurrence: None)
  Receive Date: 20120820
  Receipt Date: 20120815
  Transmission Date: 20120928
  Serious: Yes (Hospitalization)
  Sender: FDA-Public Use
  Company Number: GB-PFIZER INC-2012199415

PATIENT
  Age: 65 Year
  Sex: Male
  Weight: 115 kg

DRUGS (10)
  1. SPIRONOLACTONE [Concomitant]
  2. BISOPROLOL [Concomitant]
  3. IPRATROPIUM BROMIDE [Concomitant]
  4. OMEPRAZOLE [Concomitant]
  5. FUROSEMIDE [Concomitant]
  6. THIAMINE [Concomitant]
  7. HYDROXYCARBAMIDE [Concomitant]
  8. RAMIPRIL [Suspect]
     Indication: HYPERTENSION
     Route: 048
     Dates: start: 20080401, end: 20111116
  9. WARFARIN [Concomitant]
  10. FEXOFENADINE [Concomitant]

REACTIONS (1)
  - LUPUS-LIKE SYNDROME [None]
